FAERS Safety Report 6577534-7 (Version None)
Quarter: 2010Q1

REPORT INFORMATION
  Report Type: 
  Country: None (occurrence: None)
  Receive Date: 20100211
  Receipt Date: 20100202
  Transmission Date: 20100710
  Serious: Yes (Death, Hospitalization)
  Sender: FDA-Public Use
  Company Number: US-EISAI INC.-E7272-00045-SPO-US

PATIENT
  Sex: Male
  Weight: 73 kg

DRUGS (21)
  1. ONTAK [Suspect]
     Route: 041
     Dates: start: 20090223, end: 20100106
  2. ONTAK [Suspect]
     Route: 041
     Dates: start: 20070305, end: 20070627
  3. ONTAK [Suspect]
     Route: 041
     Dates: start: 20060918, end: 20070304
  4. ONTAK [Suspect]
     Route: 041
     Dates: start: 20060821, end: 20060917
  5. ONTAK [Suspect]
     Route: 016
     Dates: start: 20060725, end: 20060820
  6. TARGRETIN [Suspect]
     Route: 048
     Dates: start: 20091101
  7. TARGRETIN [Suspect]
     Route: 048
     Dates: start: 20090807, end: 20091101
  8. TARGRETIN [Suspect]
     Route: 048
     Dates: start: 20081224, end: 20090206
  9. TARGRETIN [Suspect]
     Route: 048
     Dates: start: 20080820, end: 20081001
  10. TARGRETIN [Suspect]
     Route: 048
     Dates: start: 20080724, end: 20080820
  11. TARGRETIN [Suspect]
     Route: 048
     Dates: start: 20080401, end: 20080515
  12. TARGRETIN [Suspect]
     Route: 048
     Dates: start: 20080226, end: 20080401
  13. TARGRETIN [Suspect]
     Route: 048
     Dates: start: 20080130, end: 20080226
  14. TARGRETIN [Suspect]
     Route: 048
     Dates: end: 20070701
  15. FISH OIL [Concomitant]
     Route: 048
  16. PAXIL [Concomitant]
     Indication: DEPRESSION
     Route: 048
     Dates: start: 20070701
  17. SYNTHROID [Concomitant]
     Indication: HYPOTHYROIDISM
     Route: 048
     Dates: start: 20060701
  18. LISINOPRIL [Concomitant]
     Route: 048
     Dates: start: 20070201
  19. LIPITOR [Concomitant]
     Indication: HYPERCHOLESTEROLAEMIA
     Route: 048
     Dates: start: 20060701
  20. ATARAX [Concomitant]
     Route: 048
     Dates: start: 20060101
  21. NIFEDIPINE [Concomitant]
     Indication: HYPERTENSION
     Route: 048
     Dates: start: 20091001

REACTIONS (12)
  - ASTHENIA [None]
  - COUGH [None]
  - DYSPNOEA [None]
  - HAEMATURIA [None]
  - HYPOXIA [None]
  - MUSCLE SPASMS [None]
  - OXYGEN SATURATION DECREASED [None]
  - PNEUMONITIS CHEMICAL [None]
  - PRURITUS [None]
  - PULMONARY FIBROSIS [None]
  - RASH [None]
  - THROMBOCYTOPENIA [None]
